FAERS Safety Report 6405397-9 (Version None)
Quarter: 2009Q4

REPORT INFORMATION
  Report Type: 
  Country: None (occurrence: None)
  Receive Date: 20091019
  Receipt Date: 20091008
  Transmission Date: 20100525
  Serious: Yes (Hospitalization)
  Sender: FDA-Public Use
  Company Number: JP-PFIZER INC-2009278629

PATIENT
  Age: 50 Year

DRUGS (1)
  1. PROVERA [Suspect]

REACTIONS (3)
  - LIVER DISORDER [None]
  - MALAISE [None]
  - PYREXIA [None]
